FAERS Safety Report 10658568 (Version 2)
Quarter: 2014Q4

REPORT INFORMATION
  Report Type: Spontaneous
  Country: US (occurrence: US)
  Receive Date: 20141217
  Receipt Date: 20141223
  Transmission Date: 20150529
  Serious: No
  Sender: FDA-Public Use
  Company Number: US-GLAXOSMITHKLINE-A1069537A

PATIENT

DRUGS (12)
  1. VOTRIENT [Suspect]
     Active Substance: PAZOPANIB HYDROCHLORIDE
     Indication: RENAL CANCER
     Dosage: 200 MG, UNKNOWN DOSING
     Route: 065
     Dates: start: 20131129
  2. METHOCARBAMOL. [Concomitant]
     Active Substance: METHOCARBAMOL
  3. TRAMADOL [Concomitant]
     Active Substance: TRAMADOL
  4. PLAVIX [Concomitant]
     Active Substance: CLOPIDOGREL BISULFATE
  5. VOTRIENT [Suspect]
     Active Substance: PAZOPANIB HYDROCHLORIDE
     Dosage: 800 MG, QD
     Route: 048
     Dates: start: 201311
  6. PROTONIX [Concomitant]
     Active Substance: PANTOPRAZOLE SODIUM
  7. NORVASC [Concomitant]
     Active Substance: AMLODIPINE BESYLATE
  8. MULTIVITAMIN [Concomitant]
     Active Substance: VITAMINS
  9. LOPRESSOR [Concomitant]
     Active Substance: METOPROLOL TARTRATE
  10. ZOCOR [Concomitant]
     Active Substance: SIMVASTATIN
  11. CLONIDINE. [Concomitant]
     Active Substance: CLONIDINE
  12. HYDROCODONE [Concomitant]
     Active Substance: HYDROCODONE

REACTIONS (6)
  - Epistaxis [Not Recovered/Not Resolved]
  - Multiple allergies [Unknown]
  - Nasopharyngitis [Recovered/Resolved]
  - Diarrhoea [Unknown]
  - Pain [Unknown]
  - Back disorder [Recovered/Resolved]

NARRATIVE: CASE EVENT DATE: 201404
